FAERS Safety Report 23694753 (Version 1)
Quarter: 2024Q2

REPORT INFORMATION
  Report Type: Spontaneous
  Country: IR (occurrence: IR)
  Receive Date: 20240402
  Receipt Date: 20240402
  Transmission Date: 20240715
  Serious: No
  Sender: FDA-Public Use
  Company Number: IR-ALKEM LABORATORIES LIMITED-IR-ALKEM-2023-03512

PATIENT

DRUGS (1)
  1. COLCHICINE [Suspect]
     Active Substance: COLCHICINE
     Indication: Osteoarthritis
     Dosage: 0.5 MILLIGRAM, BID (PILLS) (TWICE A DAY)
     Route: 048

REACTIONS (1)
  - Arthralgia [Unknown]
